FAERS Safety Report 9233515 (Version 1)
Quarter: 2013Q2

REPORT INFORMATION
  Report Type: Report from Study
  Country: NZ (occurrence: NZ)
  Receive Date: 20130416
  Receipt Date: 20130416
  Transmission Date: 20140414
  Serious: Yes (Hospitalization)
  Sender: FDA-Public Use
  Company Number: AU-SANOFI-AVENTIS-2013SA037243

PATIENT
  Age: 72 Year
  Sex: Male

DRUGS (11)
  1. ARAVA [Suspect]
     Indication: PRODUCT USED FOR UNKNOWN INDICATION
     Route: 048
     Dates: start: 20121002
  2. ACUPRIL [Concomitant]
  3. ASPIRIN [Concomitant]
  4. FERROGRADUMET [Concomitant]
  5. PREDNISONE [Concomitant]
  6. LASIX [Concomitant]
  7. LOSEC [Concomitant]
  8. LIPEX [Concomitant]
  9. AMITRIPTYLINE [Concomitant]
  10. VENTOLINE [Concomitant]
  11. FOSAMAX [Concomitant]

REACTIONS (2)
  - Convulsion [Recovering/Resolving]
  - Diarrhoea [Recovering/Resolving]
